FAERS Safety Report 25711822 (Version 1)
Quarter: 2025Q3

REPORT INFORMATION
  Report Type: Report from Study
  Country: EU (occurrence: EU)
  Receive Date: 20250821
  Receipt Date: 20250821
  Transmission Date: 20251021
  Serious: Yes (Death, Hospitalization)
  Sender: IPSEN BIOPHARMACEUTICALS, INC.
  Company Number: EU-IPSEN Group, Research and Development-2025-15188

PATIENT
  Age: 70 Year
  Sex: Male

DRUGS (1)
  1. LANREOTIDE ACETATE [Suspect]
     Active Substance: LANREOTIDE ACETATE
     Indication: Neuroendocrine tumour
     Dosage: 1.00 X EVERY 4 WEEKS
     Dates: start: 20250612

REACTIONS (2)
  - Death [Fatal]
  - Adverse event [Unknown]

NARRATIVE: CASE EVENT DATE: 20250619
